FAERS Safety Report 9685586 (Version 2)
Quarter: 2013Q4

REPORT INFORMATION
  Report Type: Spontaneous
  Country: BR (occurrence: BR)
  Receive Date: 20131113
  Receipt Date: 20131114
  Transmission Date: 20140711
  Serious: Yes (Other)
  Sender: FDA-Public Use
  Company Number: BR-VERTEX PHARMACEUTICALS INC-2013-010992

PATIENT
  Age: 48 Year
  Sex: 0

DRUGS (1)
  1. INCIVO [Suspect]
     Indication: ACUTE HEPATITIS C
     Route: 065

REACTIONS (4)
  - Haematuria [Unknown]
  - Asthenia [Unknown]
  - Dizziness [Unknown]
  - Nausea [Unknown]
